FAERS Safety Report 5063866-0 (Version None)
Quarter: 2006Q3

REPORT INFORMATION
  Report Type: 
  Country: None (occurrence: None)
  Receive Date: 20060724
  Receipt Date: 20060711
  Transmission Date: 20061208
  Serious: Yes (Hospitalization, Other)
  Sender: FDA-Public Use
  Company Number: 2005045644

PATIENT
  Age: 32 Year
  Sex: Female
  Weight: 63.5036 kg

DRUGS (6)
  1. DIDREX [Suspect]
     Indication: ATTENTION DEFICIT/HYPERACTIVITY DISORDER
     Dosage: 200 MG (50 MG, 1 IN 2 D), ORAL
     Route: 048
     Dates: start: 19700101
  2. DIDREX [Suspect]
     Indication: DEPRESSION
     Dosage: 200 MG (50 MG, 1 IN 2 D), ORAL
     Route: 048
     Dates: start: 19700101
  3. LEVOXIL (LEVOTHYROXINE SODIUM) [Concomitant]
  4. ZOCOR [Concomitant]
  5. RESTORIL [Concomitant]
  6. ALL OTHER THERAPEUTIC PRODUCTS [Suspect]
     Indication: ILL-DEFINED DISORDER
     Dosage: INTRAMUSCULAR
     Route: 030
     Dates: start: 19950401

REACTIONS (21)
  - APATHY [None]
  - ATTENTION DEFICIT/HYPERACTIVITY DISORDER [None]
  - BLOOD CHOLESTEROL INCREASED [None]
  - CONDITION AGGRAVATED [None]
  - CONSTIPATION [None]
  - DEPRESSION [None]
  - DRUG INEFFECTIVE [None]
  - FALSE POSITIVE LABORATORY RESULT [None]
  - FEELING ABNORMAL [None]
  - HEADACHE [None]
  - HYPERTHYROIDISM [None]
  - HYPOTHYROIDISM [None]
  - LOSS OF CONSCIOUSNESS [None]
  - NAUSEA [None]
  - NERVOUSNESS [None]
  - PAIN [None]
  - PHARMACEUTICAL PRODUCT COMPLAINT [None]
  - POOR QUALITY DRUG ADMINISTERED [None]
  - SINUS DISORDER [None]
  - TREATMENT NONCOMPLIANCE [None]
  - VISION BLURRED [None]
